FAERS Safety Report 9152746 (Version 1)
Quarter: 2013Q1

REPORT INFORMATION
  Report Type: Spontaneous
  Country: US (occurrence: US)
  Receive Date: 20130308
  Receipt Date: 20130308
  Transmission Date: 20140127
  Serious: No
  Sender: FDA-Public Use
  Company Number: US-ASTRAZENECA-2013SE07375

PATIENT
  Age: 76 Year
  Sex: Male

DRUGS (2)
  1. CRESTOR [Suspect]
     Route: 048
  2. LOTS MORE MEDICINE [Concomitant]

REACTIONS (4)
  - Dyskinesia [Unknown]
  - Micturition disorder [Unknown]
  - Myalgia [Unknown]
  - Asthenia [Unknown]
